FAERS Safety Report 4510882-0 (Version None)
Quarter: 2004Q4

REPORT INFORMATION
  Report Type: 
  Country: None (occurrence: None)
  Receive Date: 20041124
  Receipt Date: 20041117
  Transmission Date: 20050328
  Serious: Yes (Other)
  Sender: FDA-Public Use
  Company Number: US-MERCK-0411USA03034

PATIENT
  Age: 79 Year
  Sex: Female

DRUGS (6)
  1. VIOXX [Suspect]
     Indication: MUSCULOSKELETAL DISCOMFORT
     Route: 048
     Dates: end: 20040101
  2. VIOXX [Suspect]
     Indication: ARTHRITIS
     Route: 048
     Dates: end: 20040101
  3. DILANTIN [Concomitant]
     Route: 065
  4. LOVASTATIN [Concomitant]
     Route: 065
  5. LISINOPRIL [Concomitant]
     Route: 065
  6. LEVOTHYROXINE SODIUM [Concomitant]
     Route: 065

REACTIONS (2)
  - HYPERTENSION [None]
  - TOOTH DISORDER [None]
